FAERS Safety Report 10854875 (Version 1)
Quarter: 2015Q1

REPORT INFORMATION
  Report Type: Spontaneous
  Country: CZ (occurrence: None)
  Receive Date: 20150219
  Receipt Date: 20150219
  Transmission Date: 20150721
  Serious: Yes (Other)
  Sender: FDA-Public Use
  Company Number: CZ-ZYDUS-006551

PATIENT
  Age: 68 Year
  Sex: Female

DRUGS (2)
  1. GLICLAZIDE (GLICLAZIDE) [Suspect]
     Active Substance: GLICLAZIDE
  2. METFORMIN [Suspect]
     Active Substance: METFORMIN HYDROCHLORIDE
     Route: 048

REACTIONS (4)
  - Presyncope [None]
  - Fall [None]
  - Radius fracture [None]
  - Hypoglycaemia [None]
